FAERS Safety Report 13255103 (Version 2)
Quarter: 2017Q2

REPORT INFORMATION
  Report Type: Spontaneous
  Country: US (occurrence: US)
  Receive Date: 20170221
  Receipt Date: 20170405
  Transmission Date: 20170830
  Serious: No
  Sender: FDA-Public Use
  Company Number: US-ASTELLAS-2017US005724

PATIENT
  Sex: Female

DRUGS (4)
  1. MAPROTILINE [Interacting]
     Active Substance: MAPROTILINE
     Indication: DEPRESSION
     Route: 048
     Dates: start: 1982, end: 1985
  2. MYRBETRIQ [Interacting]
     Active Substance: MIRABEGRON
     Indication: INCONTINENCE
  3. MAPROTILINE [Interacting]
     Active Substance: MAPROTILINE
     Indication: SEROTONIN SYNDROME
     Route: 048
     Dates: start: 1985
  4. MYRBETRIQ [Suspect]
     Active Substance: MIRABEGRON
     Indication: MICTURITION URGENCY
     Route: 048
     Dates: start: 20170212, end: 20170213

REACTIONS (1)
  - Drug interaction [Unknown]
